FAERS Safety Report 15758222 (Version 1)
Quarter: 2018Q4

REPORT INFORMATION
  Report Type: Spontaneous
  Country: US (occurrence: US)
  Receive Date: 20181225
  Receipt Date: 20181225
  Transmission Date: 20190205
  Serious: No
  Sender: FDA-Public Use
  Company Number: US-BAUSCH-BL-2018-003540

PATIENT
  Age: 71 Year
  Sex: Female

DRUGS (1)
  1. ALAWAY [Suspect]
     Active Substance: KETOTIFEN FUMARATE
     Indication: LENS DISORDER
     Route: 047
     Dates: start: 20171229, end: 20180105

REACTIONS (2)
  - Fatigue [Recovered/Resolved]
  - Eyelid disorder [Recovered/Resolved]
